FAERS Safety Report 8455923-3 (Version None)
Quarter: 2012Q2

REPORT INFORMATION
  Report Type: 
  Country: None (occurrence: None)
  Receive Date: 20120621
  Receipt Date: 20120612
  Transmission Date: 20120825
  Serious: Yes (Other)
  Sender: FDA-Public Use
  Company Number: PHHY2012BR050031

PATIENT
  Age: 56 Year
  Sex: Male

DRUGS (3)
  1. PREDNISONE TAB [Suspect]
     Route: 048
  2. GATIFLOXACIN [Concomitant]
  3. PREDNISOLONE [Suspect]

REACTIONS (4)
  - INTRAOCULAR PRESSURE INCREASED [None]
  - KERATITIS FUNGAL [None]
  - CORNEAL OEDEMA [None]
  - EYE PAIN [None]
